FAERS Safety Report 16340067 (Version 1)
Quarter: 2019Q2

REPORT INFORMATION
  Report Type: Report from Study
  Country: None (occurrence: US)
  Receive Date: 20190521
  Receipt Date: 20190521
  Transmission Date: 20190711
  Serious: Yes (Other)
  Sender: FDA-Public Use
  Company Number: US-ABBVIE-18K-163-2600591-00

PATIENT
  Age: 60 Year
  Sex: Male

DRUGS (1)
  1. HUMIRA [Suspect]
     Active Substance: ADALIMUMAB
     Indication: PSORIATIC ARTHROPATHY
     Route: 058
     Dates: start: 20181116

REACTIONS (14)
  - Weight increased [Unknown]
  - Constipation [Unknown]
  - Product prescribing error [Unknown]
  - Intermittent claudication [Unknown]
  - Abdominal pain [Unknown]
  - Musculoskeletal pain [Not Recovered/Not Resolved]
  - Pain [Unknown]
  - Nasopharyngitis [Unknown]
  - Arthralgia [Recovering/Resolving]
  - Gait disturbance [Not Recovered/Not Resolved]
  - Aortic aneurysm [Recovered/Resolved]
  - Angiopathy [Unknown]
  - Therapeutic response shortened [Unknown]
  - Pain in extremity [Recovering/Resolving]

NARRATIVE: CASE EVENT DATE: 2018
